FAERS Safety Report 7596276-2 (Version None)
Quarter: 2011Q3

REPORT INFORMATION
  Report Type: 
  Country: None (occurrence: None)
  Receive Date: 20110707
  Receipt Date: 20110629
  Transmission Date: 20111222
  Serious: Yes (Other)
  Sender: FDA-Public Use
  Company Number: US-US-EMD SERONO, INC.-7049110

PATIENT
  Sex: Female
  Weight: 109 kg

DRUGS (3)
  1. AMANTADINE HCL [Concomitant]
     Indication: FATIGUE
     Route: 048
     Dates: start: 20110207
  2. REBIF [Suspect]
     Indication: RELAPSING-REMITTING MULTIPLE SCLEROSIS
     Route: 058
     Dates: start: 20100310
  3. IBUPROFEN [Concomitant]
     Indication: PREMEDICATION

REACTIONS (4)
  - CERVICITIS TRICHOMONAL [None]
  - CERVICAL DYSPLASIA [None]
  - INJECTION SITE SWELLING [None]
  - HUMAN PAPILLOMA VIRUS TEST POSITIVE [None]
